FAERS Safety Report 12280442 (Version 1)
Quarter: 2016Q2

REPORT INFORMATION
  Report Type: Spontaneous
  Country: BE (occurrence: BE)
  Receive Date: 20160419
  Receipt Date: 20160419
  Transmission Date: 20160815
  Serious: Yes (Other)
  Sender: FDA-Public Use
  Company Number: BE-PFIZER INC-2016215620

PATIENT
  Age: 54 Year
  Sex: Female
  Weight: 97 kg

DRUGS (1)
  1. SULFASALAZINE. [Suspect]
     Active Substance: SULFASALAZINE
     Indication: PSORIATIC ARTHROPATHY
     Dosage: 3000 MG, DAILY (6 X 500 MG/DAY)

REACTIONS (1)
  - Nephrolithiasis [Unknown]
